FAERS Safety Report 25896365 (Version 1)
Quarter: 2025Q4

REPORT INFORMATION
  Report Type: Spontaneous
  Country: US (occurrence: None)
  Receive Date: 20251007
  Receipt Date: 20251007
  Transmission Date: 20260118
  Serious: Yes (Hospitalization)
  Sender: FDA-CTU
  Company Number: None

PATIENT
  Age: 28 Year
  Sex: Male

DRUGS (1)
  1. DROXIDOPA [Suspect]
     Active Substance: DROXIDOPA
     Indication: Dizziness
     Dosage: FREQUENCY : 3 TIMES A DAY;?
     Route: 048
     Dates: start: 20250403

REACTIONS (6)
  - Postural orthostatic tachycardia syndrome [None]
  - Hypokalaemia [None]
  - Laryngitis [None]
  - Pharyngitis [None]
  - Sepsis [None]
  - Hypernatraemia [None]

NARRATIVE: CASE EVENT DATE: 20250712
